FAERS Safety Report 15727302 (Version 2)
Quarter: 2019Q2

REPORT INFORMATION
  Report Type: Report from Study
  Country: None (occurrence: US)
  Receive Date: 20181217
  Receipt Date: 20190603
  Transmission Date: 20190711
  Serious: Yes (Other)
  Sender: FDA-Public Use
  Company Number: US-ABBVIE-18K-163-2580946-00

PATIENT
  Age: 52 Year
  Sex: Female
  Weight: 68.1 kg

DRUGS (4)
  1. HUMIRA [Suspect]
     Active Substance: ADALIMUMAB
     Route: 058
     Dates: start: 2017, end: 2017
  2. HUMIRA [Suspect]
     Active Substance: ADALIMUMAB
     Route: 058
     Dates: start: 20190403
  3. LEVOTHYROXINE. [Concomitant]
     Active Substance: LEVOTHYROXINE
     Indication: HYPOTHYROIDISM
  4. HUMIRA [Suspect]
     Active Substance: ADALIMUMAB
     Indication: RHEUMATOID ARTHRITIS
     Route: 058
     Dates: start: 2004, end: 2017

REACTIONS (14)
  - Arthritis [Recovered/Resolved]
  - Pain in extremity [Recovering/Resolving]
  - Arthropathy [Unknown]
  - Urethral disorder [Recovered/Resolved]
  - Arthropathy [Not Recovered/Not Resolved]
  - Herpes zoster [Recovering/Resolving]
  - Bone operation [Unknown]
  - Weight increased [Not Recovered/Not Resolved]
  - Stress [Unknown]
  - Joint swelling [Recovering/Resolving]
  - Osteoarthritis [Not Recovered/Not Resolved]
  - Procedural pain [Recovering/Resolving]
  - Nephrolithiasis [Recovered/Resolved]
  - Osteoarthritis [Recovered/Resolved]

NARRATIVE: CASE EVENT DATE: 2017
